FAERS Safety Report 15298242 (Version 1)
Quarter: 2018Q3

REPORT INFORMATION
  Report Type: Spontaneous
  Country: US (occurrence: US)
  Receive Date: 20180820
  Receipt Date: 20180820
  Transmission Date: 20181010
  Serious: No
  Sender: FDA-Public Use
  Company Number: US-ALLERGAN-1825366US

PATIENT
  Age: 27 Year
  Sex: Male

DRUGS (7)
  1. BACLOFEN. [Concomitant]
     Active Substance: BACLOFEN
     Indication: MUSCLE SPASTICITY
     Dosage: UNK
     Route: 065
  2. TRAZODONE [Concomitant]
     Active Substance: TRAZODONE HYDROCHLORIDE
     Dosage: UNK
     Route: 065
     Dates: start: 2015
  3. SAPHRIS [Suspect]
     Active Substance: ASENAPINE MALEATE
     Indication: CRANIOCEREBRAL INJURY
     Dosage: 5 MG, UNK
     Route: 048
     Dates: start: 2016
  4. SAPHRIS [Suspect]
     Active Substance: ASENAPINE MALEATE
     Dosage: 20 MG, UNK
     Route: 048
  5. METHYLPHENIDATE. [Concomitant]
     Active Substance: METHYLPHENIDATE
     Indication: CRANIOCEREBRAL INJURY
     Dosage: UNK
     Route: 065
     Dates: start: 2003
  6. DEPAKOTE [Concomitant]
     Active Substance: DIVALPROEX SODIUM
     Dosage: UNK
     Route: 065
  7. SAPHRIS [Suspect]
     Active Substance: ASENAPINE MALEATE
     Dosage: 40 MG, UNK
     Route: 048
     Dates: end: 201805

REACTIONS (3)
  - Off label use [Unknown]
  - Delusion [Recovered/Resolved]
  - Drug ineffective for unapproved indication [Unknown]

NARRATIVE: CASE EVENT DATE: 201805
